FAERS Safety Report 5742562-8 (Version None)
Quarter: 2008Q2

REPORT INFORMATION
  Report Type: 
  Country: None (occurrence: None)
  Receive Date: 20080515
  Receipt Date: 20080506
  Transmission Date: 20081010
  Serious: Yes (Other)
  Sender: FDA-Public Use
  Company Number: 2008AP001145

PATIENT
  Age: 60 Year
  Sex: Male

DRUGS (2)
  1. AMLODIPINE BESYLATE [Suspect]
     Indication: HYPERTENSION
     Dosage: 10 MG; PO, 10 MG; PO
     Route: 048
     Dates: start: 20071101, end: 20080401
  2. AMLODIPINE BESYLATE [Suspect]
     Indication: HYPERTENSION
     Dosage: 10 MG; PO, 10 MG; PO
     Route: 048
     Dates: start: 20071101, end: 20080401

REACTIONS (3)
  - DEPRESSED MOOD [None]
  - DEPRESSION [None]
  - SUICIDAL IDEATION [None]
